FAERS Safety Report 18729997 (Version 1)
Quarter: 2021Q1

REPORT INFORMATION
  Report Type: Spontaneous
  Country: US (occurrence: US)
  Receive Date: 20210112
  Receipt Date: 20210112
  Transmission Date: 20210419
  Serious: No
  Sender: FDA-Public Use
  Company Number: US-UNITED THERAPEUTICS-UNT-2021-000371

PATIENT
  Sex: Female
  Weight: 48.07 kg

DRUGS (2)
  1. REMODULIN [Suspect]
     Active Substance: TREPROSTINIL
     Indication: PULMONARY ARTERIAL HYPERTENSION
     Dosage: UNK, CONTINUING
     Route: 041
     Dates: start: 20200608
  2. REMODULIN [Suspect]
     Active Substance: TREPROSTINIL
     Dosage: 0.025 ?G/KG, CONTINUING
     Route: 041
     Dates: start: 20201230

REACTIONS (8)
  - Dizziness [Unknown]
  - Palpitations [Unknown]
  - Diarrhoea [Unknown]
  - Joint swelling [Unknown]
  - Nausea [Unknown]
  - Skin tightness [Unknown]
  - Headache [Unknown]
  - Pain in jaw [Unknown]
